FAERS Safety Report 5647987-7 (Version None)
Quarter: 2008Q1

REPORT INFORMATION
  Report Type: 
  Country: None (occurrence: None)
  Receive Date: 20080131
  Receipt Date: 20071127
  Transmission Date: 20080703
  Serious: No
  Sender: FDA-Public Use
  Company Number: US200711006295

PATIENT
  Age: 44 Year
  Sex: Female

DRUGS (4)
  1. BYETTA [Suspect]
     Indication: TYPE 2 DIABETES MELLITUS
     Dosage: 10 UG, 2/D, SUBCUTANEOUS
     Route: 058
     Dates: start: 20071101
  2. PRANDIN /USA/ (REPAGLINIDE) [Concomitant]
  3. ACTOS /USA./ (PIOGLITAZONE HYDROCHLORIDE) [Concomitant]
  4. GLUCOVANCE [Concomitant]

REACTIONS (4)
  - BLOOD GLUCOSE INCREASED [None]
  - HYPOGLYCAEMIA [None]
  - NAUSEA [None]
  - TREMOR [None]
